FAERS Safety Report 19924096 (Version 1)
Quarter: 2021Q4

REPORT INFORMATION
  Report Type: Spontaneous
  Country: US (occurrence: US)
  Receive Date: 20211006
  Receipt Date: 20211006
  Transmission Date: 20220304
  Serious: No
  Sender: FDA-Public Use
  Company Number: US-PFIZER INC-2021862137

PATIENT
  Age: 55 Year
  Sex: Female
  Weight: 66.67 kg

DRUGS (11)
  1. IBRANCE [Suspect]
     Active Substance: PALBOCICLIB
     Indication: Breast cancer female
     Dosage: 125 MG CYCLIC (DAILY FOR 21 DAYS)
     Route: 048
     Dates: start: 20210618
  2. IBRANCE [Suspect]
     Active Substance: PALBOCICLIB
     Indication: Bone cancer
     Dosage: 125 MG CYCLIC,(DAYS 1 THROUGH 21 OF 28 DAY CYCLE)
     Route: 048
     Dates: start: 20210618
  3. IBRANCE [Suspect]
     Active Substance: PALBOCICLIB
     Dosage: 125 MG (DAYS 1 THROUGH 21 OF 28 DAY CYCLE)
     Route: 048
     Dates: start: 20210618
  4. ROPINIROLE HYDROCHLORIDE [Concomitant]
     Active Substance: ROPINIROLE HYDROCHLORIDE
     Dosage: 0.5 MG
  5. REMERON [Concomitant]
     Active Substance: MIRTAZAPINE
     Dosage: 15 MG
  6. LORAZEPAM [Concomitant]
     Active Substance: LORAZEPAM
     Dosage: 0.5 MG
  7. LISINOPRIL [Concomitant]
     Active Substance: LISINOPRIL
     Dosage: 5 MG
  8. LETROZOLE [Concomitant]
     Active Substance: LETROZOLE
     Dosage: 2.5 MG
  9. CLONAZEPAM [Concomitant]
     Active Substance: CLONAZEPAM
     Indication: Sleep disorder
     Dosage: UNK
  10. IMODIUM A-D [Concomitant]
     Active Substance: LOPERAMIDE HYDROCHLORIDE
     Dosage: UNK
  11. TRAMADOL [Concomitant]
     Active Substance: TRAMADOL

REACTIONS (13)
  - Dyspnoea [Unknown]
  - Headache [Unknown]
  - Vision blurred [Unknown]
  - Dry mouth [Unknown]
  - Fatigue [Unknown]
  - Bone pain [Recovering/Resolving]
  - Cough [Unknown]
  - Pyrexia [Unknown]
  - Diarrhoea [Unknown]
  - Nausea [Unknown]
  - Gait disturbance [Unknown]
  - Disturbance in attention [Unknown]
  - Mood swings [Unknown]
